FAERS Safety Report 25143537 (Version 1)
Quarter: 2025Q2

REPORT INFORMATION
  Report Type: Spontaneous
  Country: PK (occurrence: PK)
  Receive Date: 20250401
  Receipt Date: 20250401
  Transmission Date: 20250716
  Serious: Yes (Hospitalization, Other)
  Sender: PURACAP
  Company Number: PK-PURACAP-PK-2025EPCLIT00342

PATIENT
  Age: 2 Month
  Sex: Female
  Weight: 1.6 kg

DRUGS (1)
  1. ERGOCALCIFEROL [Suspect]
     Active Substance: ERGOCALCIFEROL
     Indication: Product used for unknown indication
     Route: 048

REACTIONS (16)
  - Pancreatitis [Recovered/Resolved]
  - Failure to thrive [Recovered/Resolved]
  - Nephrocalcinosis [Recovered/Resolved]
  - Vomiting [Recovered/Resolved]
  - Feeding disorder [Recovered/Resolved]
  - Polyuria [Recovered/Resolved]
  - Malnutrition [Recovered/Resolved]
  - Lethargy [Recovered/Resolved]
  - Hypotonia [Recovered/Resolved]
  - Hypertriglyceridaemia [Recovered/Resolved]
  - Hypercholesterolaemia [Recovered/Resolved]
  - Toxicity to various agents [Recovered/Resolved]
  - Hypercalcaemia [Recovered/Resolved]
  - Dehydration [Recovered/Resolved]
  - Hypervitaminosis D [Recovered/Resolved]
  - Accidental overdose [Unknown]
